FAERS Safety Report 12048097 (Version 2)
Quarter: 2017Q1

REPORT INFORMATION
  Report Type: Spontaneous
  Country: DK (occurrence: DK)
  Receive Date: 20160208
  Receipt Date: 20170118
  Transmission Date: 20170428
  Serious: Yes (Other)
  Sender: FDA-Public Use
  Company Number: DK-GILEAD-2016-0195189

PATIENT
  Age: 59 Year
  Sex: Male

DRUGS (4)
  1. KODEIN ^ALTERNOVA^ [Concomitant]
     Indication: PAIN
     Dosage: UNK
     Route: 048
  2. KODEIN ^ALTERNOVA^ [Concomitant]
     Dosage: STYRKE: 25 MG.
     Route: 048
  3. SOVALDI [Suspect]
     Active Substance: SOFOSBUVIR
     Indication: CHRONIC HEPATITIS C
     Dosage: STYRKE: 400 MG
     Route: 048
     Dates: start: 20141125, end: 20150512
  4. DAKLINZA [Suspect]
     Active Substance: DACLATASVIR
     Indication: CHRONIC HEPATITIS C
     Dosage: STYRKE: 60 MG.
     Route: 048
     Dates: start: 20141125, end: 20150512

REACTIONS (11)
  - Proctalgia [Unknown]
  - Bowel movement irregularity [Recovered/Resolved]
  - Anal pruritus [Unknown]
  - Pain [Not Recovered/Not Resolved]
  - Anal haemorrhage [Recovered/Resolved]
  - Myalgia [Unknown]
  - Arthralgia [Unknown]
  - Constipation [Recovered/Resolved]
  - Diarrhoea [Recovered/Resolved]
  - Headache [Not Recovered/Not Resolved]
  - Pruritus generalised [Unknown]

NARRATIVE: CASE EVENT DATE: 201411
